FAERS Safety Report 7312797-1 (Version None)
Quarter: 2011Q1

REPORT INFORMATION
  Report Type: 
  Country: None (occurrence: None)
  Receive Date: 20110224
  Receipt Date: 20100729
  Transmission Date: 20110831
  Serious: No
  Sender: FDA-Public Use
  Company Number: US-MYLANLABS-2010S1013850

PATIENT
  Sex: Female

DRUGS (4)
  1. EFFEXOR [Concomitant]
  2. CYCLOBENZAPRINE [Concomitant]
  3. METOPROLOL TARTRATE [Suspect]
     Indication: BLOOD PRESSURE INCREASED
     Route: 048
     Dates: start: 20100501, end: 20100728
  4. CLONAZEPAM [Concomitant]

REACTIONS (4)
  - RASH ERYTHEMATOUS [None]
  - PRURITUS GENERALISED [None]
  - SKIN DISCOLOURATION [None]
  - DYSPNOEA [None]
